FAERS Safety Report 12204111 (Version 1)
Quarter: 2016Q1

REPORT INFORMATION
  Report Type: Spontaneous
  Country: US (occurrence: US)
  Receive Date: 20160323
  Receipt Date: 20160323
  Transmission Date: 20160526
  Serious: No
  Sender: FDA-Public Use
  Company Number: US-PFIZER INC-2016118311

PATIENT
  Age: 82 Year
  Sex: Female
  Weight: 54 kg

DRUGS (2)
  1. DEPO-MEDROL [Suspect]
     Active Substance: METHYLPREDNISOLONE ACETATE
     Dosage: 40 MG, UNK
     Dates: start: 20160217
  2. DEPO-MEDROL [Suspect]
     Active Substance: METHYLPREDNISOLONE ACETATE
     Indication: ARTHRALGIA
     Dosage: 30 MG, UNK

REACTIONS (13)
  - Insomnia [Recovered/Resolved]
  - Blood pressure fluctuation [Recovered/Resolved]
  - Pain in extremity [Recovered/Resolved]
  - Eating disorder [Recovered/Resolved]
  - Feeling cold [Recovered/Resolved]
  - Feeling hot [Recovered/Resolved]
  - Muscle spasms [Unknown]
  - Swelling [Recovered/Resolved]
  - Flushing [Recovered/Resolved]
  - Heart rate decreased [Unknown]
  - Abdominal pain [Recovered/Resolved]
  - Diarrhoea [Unknown]
  - Nausea [Recovered/Resolved]

NARRATIVE: CASE EVENT DATE: 201602
